FAERS Safety Report 22526611 (Version 1)
Quarter: 2023Q2

REPORT INFORMATION
  Report Type: Spontaneous
  Country: US (occurrence: US)
  Receive Date: 20230606
  Receipt Date: 20230606
  Transmission Date: 20230721
  Serious: Yes (Hospitalization)
  Sender: FDA-Public Use
  Company Number: US-PFIZER INC-202300208862

PATIENT
  Age: 89 Year
  Sex: Male

DRUGS (1)
  1. INLYTA [Suspect]
     Active Substance: AXITINIB
     Dosage: 5 MG, 2X/DAY (1 TABLET BY MOUTH, EVERY 12 HOURS)
     Route: 048
     Dates: start: 20230427, end: 20230518

REACTIONS (2)
  - Fall [Unknown]
  - Asthenia [Unknown]
